FAERS Safety Report 6088563-4 (Version None)
Quarter: 2009Q1

REPORT INFORMATION
  Report Type: 
  Country: None (occurrence: None)
  Receive Date: 20090219
  Receipt Date: 20081002
  Transmission Date: 20090719
  Serious: Yes (Hospitalization)
  Sender: FDA-Public Use
  Company Number: 2008EU002144

PATIENT
  Age: 44 Year
  Sex: Female

DRUGS (6)
  1. PROGRAF [Suspect]
     Indication: LIVER TRANSPLANT
     Dosage: 1.5 MG, WEEKLY, ORAL; 0.15 MG, WEEKLY, ORAL
     Route: 048
     Dates: start: 20080804, end: 20080909
  2. KIVEXA      (LAMIVUDINE, ABACAVIR SULFATE) [Concomitant]
  3. KALETRA [Concomitant]
  4. INIPOMP      (PANTOPRAZOLE) [Concomitant]
  5. KARDEGIC   (ACETYLSALICYLATE LYSINE) [Concomitant]
  6. AVLOCARDYL   (PROPRANOLOL HYDROCHLORIDE) [Concomitant]

REACTIONS (4)
  - ACCIDENTAL OVERDOSE [None]
  - DRUG PRESCRIBING ERROR [None]
  - HEADACHE [None]
  - NEURALGIA [None]
